FAERS Safety Report 5098534-2 (Version None)
Quarter: 2006Q3

REPORT INFORMATION
  Report Type: 
  Country: None (occurrence: None)
  Receive Date: 20060906
  Receipt Date: 20060220
  Transmission Date: 20061208
  Serious: No
  Sender: FDA-Public Use
  Company Number: US-GLAXOSMITHKLINE-A0594422A

PATIENT
  Age: 70 Year
  Sex: Male

DRUGS (4)
  1. REQUIP [Suspect]
     Indication: PARKINSON'S DISEASE
     Dosage: 2MG THREE TIMES PER DAY
     Route: 048
  2. ZOCOR [Concomitant]
  3. COZAAR [Concomitant]
  4. ZAROXOLYN [Concomitant]

REACTIONS (2)
  - OEDEMA [None]
  - WEIGHT INCREASED [None]
